FAERS Safety Report 21030078 (Version 1)
Quarter: 2022Q3

REPORT INFORMATION
  Report Type: Spontaneous
  Country: US (occurrence: None)
  Receive Date: 20220701
  Receipt Date: 20220701
  Transmission Date: 20221027
  Serious: Yes (Hospitalization)
  Sender: FDA-Public Use
  Company Number: US-ROCHE-2984207

PATIENT
  Sex: Male

DRUGS (13)
  1. ACTEMRA [Suspect]
     Active Substance: TOCILIZUMAB
     Indication: Giant cell arteritis
     Dosage: 162 MG/0.9ML
     Route: 058
     Dates: start: 20210916
  2. ACTEMRA [Suspect]
     Active Substance: TOCILIZUMAB
  3. ACTEMRA [Suspect]
     Active Substance: TOCILIZUMAB
  4. ACETAMINOPHEN [Concomitant]
     Active Substance: ACETAMINOPHEN
     Dosage: SUS
  5. ASPIRIN [Concomitant]
     Active Substance: ASPIRIN
  6. CALCITONIN [Concomitant]
     Active Substance: CALCITONIN
     Dosage: SPR 200/ACT
  7. IBUPROFEN [Concomitant]
     Active Substance: IBUPROFEN
  8. METFORMIN [Concomitant]
     Active Substance: METFORMIN HYDROCHLORIDE
  9. OMEPRAZOLE [Concomitant]
     Active Substance: OMEPRAZOLE
  10. PREDNISONE [Concomitant]
     Active Substance: PREDNISONE
  11. PROLIA [Concomitant]
     Active Substance: DENOSUMAB
  12. SIMVASTATIN [Concomitant]
     Active Substance: SIMVASTATIN
  13. VITAMIN D [Concomitant]
     Active Substance: VITAMIN D NOS

REACTIONS (1)
  - Renal abscess [Unknown]
